FAERS Safety Report 4316267-4 (Version None)
Quarter: 2004Q1

REPORT INFORMATION
  Report Type: 
  Country: None (occurrence: None)
  Receive Date: 20040310
  Receipt Date: 20030514
  Transmission Date: 20041129
  Serious: Yes (Other)
  Sender: FDA-Public Use
  Company Number: HQ5049305NOV2002

PATIENT
  Age: 23 Year
  Sex: Male
  Weight: 108.96 kg

DRUGS (3)
  1. PROTONIX [Suspect]
     Indication: NAUSEA
     Dosage: 40 MG 1 XP PER 1 DAY
     Dates: end: 20020901
  2. PROTONIX [Suspect]
     Indication: VOMITING
     Dosage: 40 MG 1 XP PER 1 DAY
     Dates: end: 20020901
  3. CLOZAPINE [Suspect]
     Indication: SCHIZOPHRENIA
     Dosage: 300 MG DAILY, ORAL
     Route: 048
     Dates: start: 20010701, end: 20020905

REACTIONS (3)
  - BLOOD ALKALINE PHOSPHATASE INCREASED [None]
  - BLOOD CREATINE PHOSPHOKINASE INCREASED [None]
  - JAUNDICE CHOLESTATIC [None]
